FAERS Safety Report 25892257 (Version 1)
Quarter: 2025Q4

REPORT INFORMATION
  Report Type: Spontaneous
  Country: PH (occurrence: PH)
  Receive Date: 20251007
  Receipt Date: 20251007
  Transmission Date: 20260117
  Serious: Yes (Other)
  Sender: GLAND PHARMA LTD
  Company Number: PH-GLANDPHARMA-PH-2025GLNLIT01929

PATIENT
  Age: 26 Year
  Sex: Female

DRUGS (3)
  1. CISPLATIN [Suspect]
     Active Substance: CISPLATIN
     Indication: Medulloblastoma
     Dosage: 2 CYCLES
     Route: 065
  2. LOMUSTINE [Suspect]
     Active Substance: LOMUSTINE
     Indication: Medulloblastoma
     Dosage: 2 CYCLES
     Route: 065
  3. VINCRISTINE [Suspect]
     Active Substance: VINCRISTINE
     Indication: Medulloblastoma
     Dosage: 2 CYCLES
     Route: 065

REACTIONS (2)
  - Haematotoxicity [Unknown]
  - Product use in unapproved indication [Unknown]
